FAERS Safety Report 7599757-0 (Version None)
Quarter: 2011Q2

REPORT INFORMATION
  Report Type: 
  Country: None (occurrence: None)
  Receive Date: 20110629
  Receipt Date: 20110615
  Transmission Date: 20111010
  Serious: Yes (Life-Threatening, Hospitalization)
  Sender: FDA-Public Use
  Company Number: LTI2011A00099

PATIENT
  Age: 71 Year
  Sex: Male

DRUGS (5)
  1. PIOGLITAZONE HYDROCHLORIDE/METFORMIN HYDROCHLORIDE [Suspect]
     Indication: TYPE 2 DIABETES MELLITUS
     Dosage: 2 TAB. (1 TAB., 2 IN 1 D) ORAL
     Route: 048
     Dates: start: 20110126, end: 20110426
  2. GLYBURIDE [Concomitant]
  3. CRESTOR [Concomitant]
  4. IPERTEN (MANIDIPINE HYDROCHLORIDE) [Concomitant]
  5. RASILEZ (ALISKIREN) (ANTIHYPERTENSIVES) [Concomitant]

REACTIONS (2)
  - DIVERTICULUM INTESTINAL [None]
  - BLADDER TRANSITIONAL CELL CARCINOMA [None]
